FAERS Safety Report 6380860-8 (Version None)
Quarter: 2009Q3

REPORT INFORMATION
  Report Type: 
  Country: None (occurrence: None)
  Receive Date: 20090929
  Receipt Date: 20090922
  Transmission Date: 20100115
  Serious: Yes (Hospitalization)
  Sender: FDA-Public Use
  Company Number: A0809137A

PATIENT
  Age: 54 Year
  Sex: Female

DRUGS (4)
  1. LAPATINIB [Suspect]
     Indication: BREAST CANCER
     Dosage: 1000MG PER DAY
     Route: 048
     Dates: start: 20090914
  2. CARBOPLATIN [Suspect]
     Indication: BREAST CANCER
     Dosage: 550MG CUMULATIVE DOSE
     Dates: start: 20090914
  3. DOCETAXEL [Suspect]
     Indication: BREAST CANCER
     Dosage: 120MG CUMULATIVE DOSE
     Dates: start: 20090914
  4. TRASTUZUMAB [Suspect]
     Indication: BREAST CANCER
     Dosage: 234MG CUMULATIVE DOSE
     Dates: start: 20090914

REACTIONS (5)
  - ABDOMINAL PAIN [None]
  - BONE PAIN [None]
  - DIARRHOEA [None]
  - GASTROINTESTINAL HAEMORRHAGE [None]
  - NAUSEA [None]
